FAERS Safety Report 9520466 (Version 1)
Quarter: 2013Q3

REPORT INFORMATION
  Report Type: Spontaneous
  Country: US (occurrence: US)
  Receive Date: 20130912
  Receipt Date: 20130912
  Transmission Date: 20140515
  Serious: Yes (Death, Hospitalization, Other)
  Sender: FDA-Public Use
  Company Number: US-JNJFOC-20130902984

PATIENT
  Sex: Female
  Weight: 54.43 kg

DRUGS (12)
  1. TYLENOL PM [Suspect]
     Indication: INSOMNIA
     Dosage: FREQUENCY: APPROXIMATELY DAILY
     Route: 065
     Dates: start: 20110227, end: 20110303
  2. LORTAB [Suspect]
     Indication: PRODUCT USED FOR UNKNOWN INDICATION
     Route: 065
  3. SOMA [Suspect]
     Indication: PRODUCT USED FOR UNKNOWN INDICATION
     Route: 065
  4. CITALOPRAM [Concomitant]
     Indication: DEPRESSION
     Route: 065
  5. APAP [Concomitant]
     Indication: NECK INJURY
     Route: 065
     Dates: start: 2010, end: 2011
  6. CARISOPRODOL [Concomitant]
     Indication: ANXIETY
     Route: 065
     Dates: start: 2010, end: 2011
  7. DIAZEPAM [Concomitant]
     Indication: ANXIETY
     Route: 065
  8. LISINOPRIL [Concomitant]
     Indication: HYPERTENSION
     Route: 065
  9. ATENOLOL [Concomitant]
     Indication: HYPERTENSION
     Route: 065
  10. PREMPRO [Concomitant]
     Indication: HOT FLUSH
     Route: 065
  11. PIROXICAM [Concomitant]
     Indication: ARTHRALGIA
     Route: 065
  12. PAROXETINE [Concomitant]
     Indication: DEPRESSION
     Route: 065

REACTIONS (7)
  - Hypertension [Not Recovered/Not Resolved]
  - Mental status changes [Not Recovered/Not Resolved]
  - Hyponatraemia [Not Recovered/Not Resolved]
  - Acute hepatic failure [Fatal]
  - Renal failure acute [Fatal]
  - Overdose [Fatal]
  - Off label use [Unknown]
